FAERS Safety Report 9558856 (Version 1)
Quarter: 2013Q3

REPORT INFORMATION
  Report Type: Spontaneous
  Country: GB (occurrence: GB)
  Receive Date: 20130926
  Receipt Date: 20130926
  Transmission Date: 20140515
  Serious: Yes (Hospitalization)
  Sender: FDA-Public Use
  Company Number: GB-ASTRAZENECA-2013SE71353

PATIENT
  Age: 5 Month
  Sex: Male

DRUGS (1)
  1. PALIVIZUMAB [Suspect]
     Route: 030
     Dates: start: 20121018, end: 20130122

REACTIONS (1)
  - Bronchiolitis [Unknown]
